FAERS Safety Report 12830801 (Version 2)
Quarter: 2016Q4

REPORT INFORMATION
  Report Type: Spontaneous
  Country: US (occurrence: US)
  Receive Date: 20161007
  Receipt Date: 20161101
  Transmission Date: 20170207
  Serious: Yes (Hospitalization, Disabling)
  Sender: FDA-Public Use
  Company Number: US-INSYS THERAPEUTICS, INC-INS201609-000546

PATIENT
  Sex: Female

DRUGS (2)
  1. LIQUID MORPHINE [Concomitant]
     Active Substance: MORPHINE
  2. SUBSYS [Suspect]
     Active Substance: FENTANYL
     Indication: BREAKTHROUGH PAIN
     Route: 060
     Dates: start: 20151209, end: 20161019

REACTIONS (1)
  - Gastric perforation [Unknown]
